FAERS Safety Report 5392855-1 (Version None)
Quarter: 2007Q3

REPORT INFORMATION
  Report Type: 
  Country: None (occurrence: None)
  Receive Date: 20070720
  Receipt Date: 20070710
  Transmission Date: 20080115
  Serious: Yes (Other)
  Sender: FDA-Public Use
  Company Number: KR-PFIZER INC-2007057310

PATIENT
  Sex: Male

DRUGS (2)
  1. XALATAN [Suspect]
     Indication: GLAUCOMA
     Route: 047
  2. ANTIHYPERTENSIVES [Concomitant]
     Route: 048

REACTIONS (3)
  - MICTURITION URGENCY [None]
  - MOTOR DYSFUNCTION [None]
  - MYALGIA [None]
